FAERS Safety Report 17188941 (Version 5)
Quarter: 2020Q3

REPORT INFORMATION
  Report Type: Spontaneous
  Country: JP (occurrence: JP)
  Receive Date: 20191222
  Receipt Date: 20200825
  Transmission Date: 20201102
  Serious: Yes (Hospitalization, Other)
  Sender: FDA-Public Use
  Company Number: JP-BRISTOL-MYERS SQUIBB COMPANY-BMS-2019-121586

PATIENT
  Age: 75 Year
  Sex: Male

DRUGS (5)
  1. BACTRAMIN [Concomitant]
     Active Substance: SULFAMETHOXAZOLE\TRIMETHOPRIM
     Indication: PROPHYLAXIS
     Dosage: 1 TAB, QD
     Route: 048
     Dates: start: 20180424
  2. PREDNISOLONE. [Concomitant]
     Active Substance: PREDNISOLONE
     Indication: RHEUMATOID ARTHRITIS
     Dosage: 2.5 MILLIGRAM, BID
     Route: 048
     Dates: start: 20170404
  3. ORENCIA [Suspect]
     Active Substance: ABATACEPT
     Indication: RHEUMATOID ARTHRITIS
     Dosage: 250 MILLIGRAM
     Route: 058
     Dates: start: 20190510, end: 20190820
  4. MUCOSTA [Concomitant]
     Active Substance: REBAMIPIDE
     Indication: CHRONIC GASTRITIS
     Dosage: 100 MILLIGRAM, BID
     Route: 048
     Dates: start: 20170516
  5. XARELTO [Concomitant]
     Active Substance: RIVAROXABAN
     Indication: DEEP VEIN THROMBOSIS
     Dosage: 15 MILLIGRAM, QD
     Route: 048
     Dates: start: 20170530

REACTIONS (3)
  - Pericarditis [Recovered/Resolved]
  - Pleurisy [Recovered/Resolved]
  - Pneumonia [Recovered/Resolved]

NARRATIVE: CASE EVENT DATE: 20190819
